FAERS Safety Report 18888601 (Version 1)
Quarter: 2021Q1

REPORT INFORMATION
  Report Type: Report from Study
  Country: CO (occurrence: CO)
  Receive Date: 20210212
  Receipt Date: 20210212
  Transmission Date: 20210420
  Serious: Yes (Death, Hospitalization)
  Sender: FDA-Public Use
  Company Number: CO-JNJFOC-20210214281

PATIENT
  Age: 19 Year
  Sex: Male
  Weight: 54 kg

DRUGS (1)
  1. MACITENTAN [Suspect]
     Active Substance: MACITENTAN
     Indication: PULMONARY ARTERIAL HYPERTENSION
     Route: 048
     Dates: start: 20191111

REACTIONS (4)
  - Illness [Unknown]
  - Product administration interrupted [Recovered/Resolved]
  - Abdominal pain upper [Unknown]
  - Death [Fatal]

NARRATIVE: CASE EVENT DATE: 20210123
